FAERS Safety Report 9867248 (Version 2)
Quarter: 2014Q1

REPORT INFORMATION
  Report Type: Report from Study
  Country: DE (occurrence: DE)
  Receive Date: 20140204
  Receipt Date: 20140204
  Transmission Date: 20141002
  Serious: Yes (Death)
  Sender: FDA-Public Use
  Company Number: DE-BRISTOL-MYERS SQUIBB COMPANY-20128575

PATIENT
  Age: 71 Year
  Sex: Male

DRUGS (2)
  1. ABATACEPT [Suspect]
     Dates: start: 200712, end: 200804
  2. TOCILIZUMAB [Suspect]
     Dates: start: 200903, end: 200906

REACTIONS (1)
  - Death [Fatal]
